FAERS Safety Report 10468504 (Version 1)
Quarter: 2014Q3

REPORT INFORMATION
  Report Type: Report from Study
  Country: BR (occurrence: BR)
  Receive Date: 20140922
  Receipt Date: 20140922
  Transmission Date: 20150326
  Serious: Yes (Other)
  Sender: FDA-Public Use
  Company Number: PHHY2014BR123308

PATIENT
  Sex: Female

DRUGS (3)
  1. VITAMIN D [Concomitant]
     Active Substance: CHOLECALCIFEROL
  2. VITAMIN [Concomitant]
     Active Substance: VITAMINS
  3. EXELON [Suspect]
     Active Substance: RIVASTIGMINE TARTRATE
     Dosage: 3.5 ML, BID (IN THE MORNING AND AT NIGHT)

REACTIONS (2)
  - Dementia Alzheimer^s type [Unknown]
  - Femur fracture [Unknown]
